FAERS Safety Report 9360081 (Version 1)
Quarter: 2013Q2

REPORT INFORMATION
  Report Type: Spontaneous
  Country: US (occurrence: US)
  Receive Date: 20130621
  Receipt Date: 20130621
  Transmission Date: 20140414
  Serious: No
  Sender: FDA-Public Use
  Company Number: US-PFIZER INC-2013186578

PATIENT
  Age: 55 Year
  Sex: Female
  Weight: 72.56 kg

DRUGS (1)
  1. LYRICA [Suspect]
     Indication: PHANTOM PAIN
     Dosage: 150 MG, 3X/DAY
     Dates: start: 20130606

REACTIONS (5)
  - Dizziness [Unknown]
  - Impaired driving ability [Unknown]
  - Impaired work ability [Unknown]
  - Headache [Unknown]
  - Anxiety [Unknown]
